FAERS Safety Report 25579056 (Version 4)
Quarter: 2025Q3

REPORT INFORMATION
  Report Type: Spontaneous
  Country: US (occurrence: US)
  Receive Date: 20250718
  Receipt Date: 20250829
  Transmission Date: 20251021
  Serious: Yes (Death, Hospitalization, Other)
  Sender: PFIZER
  Company Number: US-PFIZER INC-PV202500086050

PATIENT
  Age: 18 Year
  Sex: Male
  Weight: 72.562 kg

DRUGS (1)
  1. DILAUDID [Suspect]
     Active Substance: HYDROMORPHONE HYDROCHLORIDE
     Indication: Hernia repair
     Route: 042
     Dates: start: 20151117, end: 20151117

REACTIONS (4)
  - Drug dependence [Fatal]
  - Overdose [Fatal]
  - Syncope [Unknown]
  - Vomiting [Unknown]

NARRATIVE: CASE EVENT DATE: 20151117
